FAERS Safety Report 23836480 (Version 1)
Quarter: 2024Q2

REPORT INFORMATION
  Report Type: Report from Study
  Country: US (occurrence: None)
  Receive Date: 20240509
  Receipt Date: 20240509
  Transmission Date: 20240715
  Serious: Yes (Other)
  Sender: FDA-Public Use
  Company Number: 2024A105095

PATIENT
  Sex: Female
  Weight: 31.2 kg

DRUGS (2)
  1. KOSELUGO [Suspect]
     Active Substance: SELUMETINIB
     Indication: Brain neoplasm malignant
     Route: 048
     Dates: start: 20211110
  2. HYDROCORTISONE [Concomitant]
     Active Substance: HYDROCORTISONE

REACTIONS (2)
  - Blood creatine phosphokinase increased [Recovered/Resolved]
  - Ejection fraction abnormal [Recovered/Resolved]
